FAERS Safety Report 14533591 (Version 2)
Quarter: 2018Q1

REPORT INFORMATION
  Report Type: Spontaneous
  Country: CA (occurrence: CA)
  Receive Date: 20180215
  Receipt Date: 20180314
  Transmission Date: 20180509
  Serious: Yes (Other)
  Sender: FDA-Public Use
  Company Number: CA-ROCHE-2069867

PATIENT
  Sex: Female

DRUGS (2)
  1. ACTEMRA [Suspect]
     Active Substance: TOCILIZUMAB
     Indication: RHEUMATOID ARTHRITIS
     Dosage: 36 INFUSION
     Route: 042
     Dates: start: 20180202
  2. ACTEMRA [Suspect]
     Active Substance: TOCILIZUMAB
     Dosage: 37 INFUSION
     Route: 042
     Dates: start: 20180307

REACTIONS (1)
  - Gastric ulcer [Not Recovered/Not Resolved]
